FAERS Safety Report 8762538 (Version 2)
Quarter: 2012Q4

REPORT INFORMATION
  Report Type: 
  Country: SE (occurrence: SE)
  Receive Date: 20120829
  Receipt Date: 20120904
  Transmission Date: 20130627
  Serious: Yes (Other)
  Sender: FDA-Public Use
  Company Number: SE-PFIZER INC-2012072951

PATIENT
  Age: 57 Year
  Sex: Female

DRUGS (4)
  1. LIPITOR [Suspect]
     Dosage: 80 mg, 1x/day
     Dates: start: 20110731, end: 201205
  2. TROMBYL [Concomitant]
     Dosage: 75 mg, UNK
     Dates: start: 201108
  3. METOPROLOL [Concomitant]
     Dosage: 50 mg, UNK
     Dates: start: 201108
  4. CLOPIDOGREL [Concomitant]
     Dosage: 75 mg, UNK
     Dates: start: 201108

REACTIONS (11)
  - Nephrolithiasis [Recovered/Resolved]
  - Muscular weakness [Recovered/Resolved]
  - Myalgia [Recovered/Resolved]
  - Arthralgia [Recovered/Resolved]
  - Pain in extremity [Not Recovered/Not Resolved]
  - Pain in extremity [Recovered/Resolved]
  - Pain in extremity [Recovered/Resolved]
  - Burning sensation [Recovered/Resolved]
  - Erythema [Recovered/Resolved]
  - Erythema [Recovered/Resolved]
  - Skin discolouration [Recovered/Resolved]
